FAERS Safety Report 9612423 (Version 3)
Quarter: 2013Q4

REPORT INFORMATION
  Report Type: Spontaneous
  Country: JP (occurrence: JP)
  Receive Date: 20131010
  Receipt Date: 20131230
  Transmission Date: 20140711
  Serious: Yes (Hospitalization)
  Sender: FDA-Public Use
  Company Number: JP-PFIZER INC-2013289345

PATIENT
  Age: 69 Year
  Sex: Male
  Weight: 48.25 kg

DRUGS (16)
  1. SOLANAX [Suspect]
     Indication: NEUROSIS
     Dosage: 0.4 MG, 3X/DAY
     Route: 048
     Dates: start: 20040928, end: 20131003
  2. TAMSULOSIN HYDROCHLORIDE [Suspect]
     Indication: HYPERTONIC BLADDER
     Dosage: 0.2 MG, 1X/DAY
     Route: 048
     Dates: start: 201303, end: 20130903
  3. OLOPATADINE HYDROCHLORIDE [Suspect]
     Indication: PRURITUS
     Dosage: 5 MG, 2X/DAY
     Route: 048
     Dates: start: 201308, end: 20130903
  4. POLYFU [Suspect]
     Indication: GASTRITIS
     Dosage: 1000 MG, 3X/DAY
     Route: 048
     Dates: start: 20040723
  5. TAKEPRON [Suspect]
     Indication: GASTRITIS
     Dosage: 15 MG, 1X/DAY
     Route: 048
     Dates: start: 20040723
  6. AMLODIN [Suspect]
     Indication: HYPERTENSION
     Dosage: 5 MG, 1X/DAY
     Route: 048
     Dates: start: 20081114, end: 20130920
  7. HIBON [Suspect]
     Indication: GLOSSITIS
     Dosage: 20 MG, AS NEEDED
     Route: 048
     Dates: start: 20121010, end: 20130903
  8. MAGMITT [Suspect]
     Indication: CONSTIPATION
     Dosage: 330 MG, 2X/DAY
     Route: 048
     Dates: start: 20070727, end: 20130903
  9. SESDEN [Suspect]
     Indication: GASTRITIS
     Dosage: 30 MG, AS NEEDED
     Route: 048
     Dates: start: 20050712, end: 20130903
  10. HIRNAMIN [Suspect]
     Indication: NEUROSIS
     Dosage: 5 MG, 1X/DAY
     Route: 048
     Dates: start: 20130123, end: 20130903
  11. MYSLEE [Suspect]
     Indication: NEUROSIS
     Dosage: 10 MG, 1X/DAY
     Route: 048
     Dates: start: 20040727, end: 20131003
  12. LOXONIN [Suspect]
     Indication: INTERVERTEBRAL DISC PROTRUSION
     Dosage: 60 MG, 3X/DAY
     Route: 048
     Dates: start: 20100517, end: 20130903
  13. SELBEX [Suspect]
     Indication: INTERVERTEBRAL DISC PROTRUSION
     Dosage: 50 MG, 3X/DAY
     Route: 048
     Dates: start: 20100517, end: 20130903
  14. PURSENNID [Suspect]
     Indication: CONSTIPATION
     Dosage: 24 MG, AS NEEDED
     Route: 048
     Dates: start: 20130823, end: 20130903
  15. PRIMPERAN [Suspect]
     Indication: VOMITING
     Dosage: 5 MG, AS NEEDED
     Route: 048
     Dates: start: 20110330, end: 20130903
  16. XYZAL [Suspect]
     Indication: PRURITUS
     Dosage: 5 MG, 1X/DAY
     Route: 048
     Dates: start: 20130905, end: 20131003

REACTIONS (1)
  - Drug-induced liver injury [Recovering/Resolving]
